FAERS Safety Report 15034197 (Version 1)
Quarter: 2018Q2

REPORT INFORMATION
  Report Type: Spontaneous
  Country: US (occurrence: US)
  Receive Date: 20180620
  Receipt Date: 20180620
  Transmission Date: 20180711
  Serious: No
  Sender: FDA-Public Use
  Company Number: US-TEVA-801761ACC

PATIENT
  Sex: Female
  Weight: 64 kg

DRUGS (1)
  1. PREDNISONE. [Suspect]
     Active Substance: PREDNISONE
     Indication: POLYMYALGIA RHEUMATICA
     Dosage: 17.5 MILLIGRAM DAILY;
     Dates: start: 201707

REACTIONS (3)
  - Swelling face [Not Recovered/Not Resolved]
  - Weight decreased [Unknown]
  - Off label use [Unknown]
